FAERS Safety Report 9238038 (Version 3)
Quarter: 2013Q2

REPORT INFORMATION
  Report Type: Spontaneous
  Country: US (occurrence: None)
  Receive Date: 20130408
  Receipt Date: 20130422
  Transmission Date: 20140414
  Serious: Yes (Other)
  Sender: FDA-Public Use
  Company Number: 2013035202

PATIENT
  Age: 46 Year
  Sex: Male
  Weight: 91.17 kg

DRUGS (2)
  1. IVIG [Suspect]
     Dosage: ONCE A MONTH INTRAVENOUS (NOT OTHERWISE SPECIFIED)?
     Route: 042
  2. PROSCAR [Concomitant]

REACTIONS (2)
  - Pneumonia [None]
  - Drug ineffective [None]
